FAERS Safety Report 18177781 (Version 2)
Quarter: 2021Q3

REPORT INFORMATION
  Report Type: Spontaneous
  Country: US (occurrence: US)
  Receive Date: 20200820
  Receipt Date: 20210924
  Transmission Date: 20211014
  Serious: Yes (Death, Hospitalization, Other)
  Sender: FDA-Public Use
  Company Number: US-PURDUE-USA-2020-0161700

PATIENT
  Sex: Female

DRUGS (2)
  1. OXYCONTIN [Suspect]
     Active Substance: OXYCODONE HYDROCHLORIDE
     Indication: PRODUCT USED FOR UNKNOWN INDICATION
     Dosage: 9 TABLET, DAILY
     Route: 048
  2. DILAUDID [Suspect]
     Active Substance: HYDROMORPHONE HYDROCHLORIDE
     Indication: PRODUCT USED FOR UNKNOWN INDICATION
     Dosage: UNKNOWN
     Route: 048

REACTIONS (8)
  - Chronic obstructive pulmonary disease [Fatal]
  - Mental impairment [Unknown]
  - Road traffic accident [Unknown]
  - Overdose [Unknown]
  - Drug dependence [Unknown]
  - Hospitalisation [Unknown]
  - Drug abuse [Unknown]
  - Unevaluable event [Unknown]

NARRATIVE: CASE EVENT DATE: 201702
